FAERS Safety Report 12450647 (Version 1)
Quarter: 2016Q2

REPORT INFORMATION
  Report Type: Spontaneous
  Country: US (occurrence: None)
  Receive Date: 20160608
  Receipt Date: 20160608
  Transmission Date: 20160815
  Serious: Yes (Life-Threatening)
  Sender: FDA-Public Use
  Company Number: None

PATIENT
  Age: 65 Year
  Sex: Female
  Weight: 72.58 kg

DRUGS (9)
  1. HCTZ [Concomitant]
     Active Substance: HYDROCHLOROTHIAZIDE
  2. MAGNESIUM [Concomitant]
     Active Substance: MAGNESIUM
  3. CHILDREN^S BENEDRYL [Concomitant]
  4. IMODIUM [Suspect]
     Active Substance: LOPERAMIDE HYDROCHLORIDE
     Indication: DIARRHOEA
     Dosage: 3 TABLET (S) 2 +1 HRS LATER TAKEN BY MOUTH
     Route: 048
  5. XANAX [Concomitant]
     Active Substance: ALPRAZOLAM
  6. PREMARIN [Concomitant]
     Active Substance: ESTROGENS, CONJUGATED
  7. VITAMIN B12 [Concomitant]
     Active Substance: CYANOCOBALAMIN
  8. ATENOLOL. [Concomitant]
     Active Substance: ATENOLOL
  9. PREVACID [Concomitant]
     Active Substance: LANSOPRAZOLE

REACTIONS (5)
  - Vertigo [None]
  - Arrhythmia [None]
  - Fatigue [None]
  - Dizziness [None]
  - Myocardial infarction [None]

NARRATIVE: CASE EVENT DATE: 20140526
